FAERS Safety Report 17223636 (Version 1)
Quarter: 2020Q1

REPORT INFORMATION
  Report Type: Spontaneous
  Country: FR (occurrence: FR)
  Receive Date: 20200102
  Receipt Date: 20200102
  Transmission Date: 20200409
  Serious: Yes (Other)
  Sender: FDA-Public Use
  Company Number: FR-FRESENIUS KABI-FK201914711

PATIENT
  Age: 55 Year
  Sex: Male

DRUGS (5)
  1. MILRINONE (MANUFACTURER UNKOWN) [Suspect]
     Active Substance: MILRINONE
     Route: 042
  2. NOREPINEPHRINE. [Suspect]
     Active Substance: NOREPINEPHRINE
     Indication: CEREBRAL VASOCONSTRICTION
     Dosage: UNKNOWN
     Route: 065
  3. MAGNESIUM SULFATE (MANUFACTURER UNKNOWN) [Suspect]
     Active Substance: MAGNESIUM SULFATE
     Indication: CEREBRAL VASOCONSTRICTION
     Dosage: UNKNOWN
     Route: 042
  4. MILRINONE (MANUFACTURER UNKOWN) [Suspect]
     Active Substance: MILRINONE
     Indication: CEREBRAL VASOCONSTRICTION
     Route: 013
  5. NIMODIPINE. [Suspect]
     Active Substance: NIMODIPINE
     Indication: CEREBRAL VASOCONSTRICTION
     Route: 065

REACTIONS (2)
  - Cardiomyopathy [Recovered/Resolved]
  - Treatment failure [Recovered/Resolved]
